APPROVED DRUG PRODUCT: EMTRICITABINE AND TENOFOVIR DISOPROXIL FUMARATE
Active Ingredient: EMTRICITABINE; TENOFOVIR DISOPROXIL FUMARATE
Strength: 133MG;200MG
Dosage Form/Route: TABLET;ORAL
Application: A212689 | Product #003 | TE Code: AB
Applicant: ZYDUS PHARMACEUTICALS USA INC
Approved: Jul 1, 2021 | RLD: No | RS: No | Type: RX